FAERS Safety Report 6080520-7 (Version None)
Quarter: 2009Q1

REPORT INFORMATION
  Report Type: 
  Country: None (occurrence: None)
  Receive Date: 20090217
  Receipt Date: 20090209
  Transmission Date: 20090719
  Serious: Yes (Other)
  Sender: FDA-Public Use
  Company Number: A0757447A

PATIENT
  Age: 70 Year
  Sex: Male
  Weight: 86.4 kg

DRUGS (7)
  1. AVANDIA [Suspect]
     Dosage: 8MG UNKNOWN
     Route: 048
     Dates: start: 20060501, end: 20090203
  2. AVODART [Concomitant]
     Route: 048
  3. ATENOLOL [Concomitant]
     Route: 048
  4. LISINOPRIL [Concomitant]
     Route: 048
  5. SIMVASTATIN [Concomitant]
     Route: 048
  6. GLYBURIDE AND METFORMIN HCL [Concomitant]
     Route: 048
  7. EXCEDRIN [Concomitant]
     Route: 048

REACTIONS (4)
  - DIABETIC RETINOPATHY [None]
  - EYE HAEMORRHAGE [None]
  - OEDEMA [None]
  - RETINAL OEDEMA [None]
